FAERS Safety Report 5259142-3 (Version None)
Quarter: 2007Q1

REPORT INFORMATION
  Report Type: 
  Country: None (occurrence: None)
  Receive Date: 20070308
  Receipt Date: 20070228
  Transmission Date: 20070707
  Serious: Yes (Death)
  Sender: FDA-Public Use
  Company Number: GB-JNJFOC-20061000990

PATIENT
  Sex: Female

DRUGS (4)
  1. RISPERDAL CONSTA [Suspect]
     Indication: MAJOR DEPRESSION
     Route: 030
  2. VENLAFAXINE XL [Concomitant]
     Indication: DEPRESSION
  3. NYSTATIN [Concomitant]
     Indication: ORAL CANDIDIASIS
     Dosage: 1000000 UNITS 4 TIMES A DAY
  4. RISPERDAL [Concomitant]
     Indication: PSYCHOTIC DISORDER

REACTIONS (2)
  - PHARYNGITIS [None]
  - PYREXIA [None]
